FAERS Safety Report 18238598 (Version 2)
Quarter: 2020Q3

REPORT INFORMATION
  Report Type: Report from Study
  Country: GB (occurrence: CN)
  Receive Date: 20200907
  Receipt Date: 20200917
  Transmission Date: 20201103
  Serious: Yes (Hospitalization)
  Sender: FDA-Public Use
  Company Number: CN-ASTELLAS-2020US030371

PATIENT
  Age: 76 Year
  Sex: Male

DRUGS (1)
  1. ERLOTINIB [Suspect]
     Active Substance: ERLOTINIB
     Indication: NON-SMALL CELL LUNG CANCER
     Route: 048
     Dates: start: 20140918

REACTIONS (5)
  - Dizziness [Unknown]
  - Vomiting [Unknown]
  - Marasmus [Unknown]
  - Otitis media [Unknown]
  - Nausea [Unknown]
